FAERS Safety Report 9237403 (Version 2)
Quarter: 2014Q2

REPORT INFORMATION
  Report Type: Report from Study
  Country: US (occurrence: US)
  Receive Date: 20130417
  Receipt Date: 20140409
  Transmission Date: 20141212
  Serious: Yes (Other)
  Sender: FDA-Public Use
  Company Number: US-US-EMD SERONO, INC.-7204834

PATIENT
  Sex: Male
  Weight: 77 kg

DRUGS (2)
  1. REBIF [Suspect]
     Indication: MULTIPLE SCLEROSIS
     Route: 058
     Dates: start: 20030401
  2. FLOVENT [Concomitant]
     Indication: PROSTATIC DISORDER

REACTIONS (5)
  - Diabetes mellitus [Unknown]
  - Renal disorder [Unknown]
  - Chills [Unknown]
  - Headache [Unknown]
  - Myalgia [Unknown]
